FAERS Safety Report 4864355-6 (Version None)
Quarter: 2005Q4

REPORT INFORMATION
  Report Type: 
  Country: None (occurrence: None)
  Receive Date: 20051222
  Receipt Date: 20051005
  Transmission Date: 20060501
  Serious: Yes (Hospitalization, Other)
  Sender: FDA-Public Use
  Company Number: US-MERCK-0510USA04366

PATIENT
  Age: 78 Year
  Sex: Female
  Weight: 80 kg

DRUGS (1)
  1. VIOXX [Suspect]
     Indication: ARTHRITIS
     Route: 048
     Dates: start: 20001101, end: 20040901

REACTIONS (4)
  - CARDIOVASCULAR DISORDER [None]
  - ISCHAEMIC STROKE [None]
  - PNEUMONIA [None]
  - PULMONARY EMBOLISM [None]
